FAERS Safety Report 6741351-5 (Version None)
Quarter: 2010Q2

REPORT INFORMATION
  Report Type: 
  Country: None (occurrence: None)
  Receive Date: 20100524
  Receipt Date: 20100510
  Transmission Date: 20101027
  Serious: Yes (Hospitalization)
  Sender: FDA-Public Use
  Company Number: ACO_00830_2010

PATIENT
  Sex: Female
  Weight: 49.8957 kg

DRUGS (10)
  1. AMPYRA [Suspect]
     Indication: MULTIPLE SCLEROSIS
     Dosage: 10 MG QD ORAL
     Route: 048
     Dates: start: 20100401, end: 20100501
  2. COPAXONE /01410901/ [Concomitant]
  3. BACTRIM [Concomitant]
  4. OXYBUTIN [Concomitant]
  5. NEURONTIN [Concomitant]
  6. BACLOFEN [Concomitant]
  7. CELEBREX [Concomitant]
  8. NEXIUM [Concomitant]
  9. VEGISEN [Concomitant]
  10. AZT [Concomitant]

REACTIONS (3)
  - ARTHRALGIA [None]
  - HEMIPLEGIA [None]
  - MULTIPLE SCLEROSIS RELAPSE [None]
